FAERS Safety Report 6198843-X (Version None)
Quarter: 2009Q2

REPORT INFORMATION
  Report Type: 
  Country: None (occurrence: None)
  Receive Date: 20090520
  Receipt Date: 20090520
  Transmission Date: 20091009
  Serious: Yes (Hospitalization)
  Sender: FDA-Public Use
  Company Number: None

PATIENT
  Age: 44 Year
  Sex: Female
  Weight: 52.1637 kg

DRUGS (1)
  1. GAMMAGARD LIQUID [Suspect]
     Dosage: 100MG 50MG PER DAY OVER 2D IV
     Route: 042
     Dates: start: 20080805

REACTIONS (2)
  - MENINGITIS ASEPTIC [None]
  - OFF LABEL USE [None]
